FAERS Safety Report 9189419 (Version 1)
Quarter: 2013Q1

REPORT INFORMATION
  Report Type: Spontaneous
  Country: CA (occurrence: CA)
  Receive Date: 20130326
  Receipt Date: 20130326
  Transmission Date: 20140127
  Serious: Yes (Other)
  Sender: FDA-Public Use
  Company Number: PHHY2012CA013573

PATIENT
  Sex: Female

DRUGS (4)
  1. ACLASTA [Suspect]
     Indication: OSTEOPOROSIS
     Dosage: UNK
     Route: 042
     Dates: start: 20091007
  2. ACLASTA [Suspect]
     Dosage: UNK
     Route: 042
     Dates: start: 20101201
  3. ACLASTA [Suspect]
     Dosage: UNK
     Route: 042
     Dates: start: 20110125
  4. ACLASTA [Suspect]
     Dosage: UNK
     Route: 042
     Dates: start: 20120228

REACTIONS (5)
  - Fall [Unknown]
  - Concussion [Unknown]
  - Memory impairment [Unknown]
  - Inappropriate schedule of drug administration [Unknown]
  - Sinusitis [Unknown]
